FAERS Safety Report 5218780-4 (Version None)
Quarter: 2007Q1

REPORT INFORMATION
  Report Type: 
  Country: None (occurrence: None)
  Receive Date: 20070123
  Receipt Date: 20070112
  Transmission Date: 20070707
  Serious: Yes (Other)
  Sender: FDA-Public Use
  Company Number: 2007AL000269

PATIENT
  Age: 16 Year
  Sex: Female

DRUGS (5)
  1. DANTROLENE SODIUM [Suspect]
     Indication: ANALGESIC EFFECT
     Dosage: PO
     Route: 048
  2. METHOTREXATE [Concomitant]
  3. ONDANSETRON [Concomitant]
  4. METHYLPREDNISOLONE 16MG TAB [Concomitant]
  5. NALBUPHINE [Concomitant]

REACTIONS (9)
  - BLOOD PRESSURE INCREASED [None]
  - CONVULSION [None]
  - CYTOLYTIC HEPATITIS [None]
  - DRUG TOXICITY [None]
  - MUCOSAL INFLAMMATION [None]
  - NEPHROPATHY [None]
  - RENAL FAILURE [None]
  - RENAL TUBULAR DISORDER [None]
  - THROMBOCYTOPENIA [None]
